FAERS Safety Report 22123269 (Version 1)
Quarter: 2023Q1

REPORT INFORMATION
  Report Type: Spontaneous
  Country: US (occurrence: US)
  Receive Date: 20230322
  Receipt Date: 20230322
  Transmission Date: 20230418
  Serious: No
  Sender: FDA-Public Use
  Company Number: US-BRISTOL-MYERS SQUIBB COMPANY-2023-041388

PATIENT
  Age: 53 Year
  Sex: Male

DRUGS (3)
  1. OPDIVO [Suspect]
     Active Substance: NIVOLUMAB
     Indication: Renal cell carcinoma
     Dosage: DOSE : UNKNOWN;     FREQ : UNKNOWN
     Dates: start: 202302
  2. YERVOY [Suspect]
     Active Substance: IPILIMUMAB
     Indication: Renal cell carcinoma
     Dates: start: 202302
  3. PREDNISONE [Concomitant]
     Active Substance: PREDNISONE
     Indication: Product used for unknown indication

REACTIONS (7)
  - Fatigue [Unknown]
  - Abdominal discomfort [Unknown]
  - Rash [Unknown]
  - Genital rash [Unknown]
  - Appetite disorder [Unknown]
  - Myalgia [Unknown]
  - Dry skin [Unknown]

NARRATIVE: CASE EVENT DATE: 20230201
